FAERS Safety Report 14988371 (Version 1)
Quarter: 2018Q2

REPORT INFORMATION
  Report Type: Spontaneous
  Country: US (occurrence: US)
  Receive Date: 20180608
  Receipt Date: 20180608
  Transmission Date: 20180711
  Serious: No
  Sender: FDA-Public Use
  Company Number: US-ASTRAZENECA-2018SE74985

PATIENT
  Age: 57 Year
  Sex: Male

DRUGS (2)
  1. PRILOSEC OTC [Suspect]
     Active Substance: OMEPRAZOLE MAGNESIUM
     Route: 048
     Dates: end: 20180528
  2. PRILOSEC OTC [Suspect]
     Active Substance: OMEPRAZOLE MAGNESIUM
     Dosage: 1 DF, ONCE DAILY BUT NOT EVERY DAY RECENTLY
     Route: 048

REACTIONS (10)
  - Lip dry [Not Recovered/Not Resolved]
  - Tongue discomfort [Not Recovered/Not Resolved]
  - Oral discomfort [Not Recovered/Not Resolved]
  - Tongue dry [Not Recovered/Not Resolved]
  - Tongue disorder [Not Recovered/Not Resolved]
  - Off label use [Unknown]
  - Oral dysaesthesia [Not Recovered/Not Resolved]
  - Lip disorder [Not Recovered/Not Resolved]
  - Incorrect drug administration duration [Unknown]
  - Dry mouth [Not Recovered/Not Resolved]
